FAERS Safety Report 6695947-X (Version None)
Quarter: 2010Q2

REPORT INFORMATION
  Report Type: 
  Country: None (occurrence: None)
  Receive Date: 20100422
  Receipt Date: 20100422
  Transmission Date: 20101027
  Serious: Yes (Life-Threatening)
  Sender: FDA-Public Use
  Company Number: None

PATIENT
  Sex: Female
  Weight: 115 kg

DRUGS (1)
  1. HURRICANE SPRAY 20% BENZOCAINE ORAL ANESTHETIC BEUTLICH PHARMACEUTICAL [Suspect]
     Indication: ENDOSCOPY UPPER GASTROINTESTINAL TRACT
     Dosage: SPRAY THROAT (048)
     Dates: start: 20100107

REACTIONS (2)
  - CYANOSIS [None]
  - OXYGEN SATURATION DECREASED [None]
